FAERS Safety Report 4506102-3 (Version None)
Quarter: 2004Q4

REPORT INFORMATION
  Report Type: 
  Country: None (occurrence: None)
  Receive Date: 20041025
  Receipt Date: 20031208
  Transmission Date: 20050328
  Serious: Yes (Other)
  Sender: FDA-Public Use
  Company Number: US-JNJFOC-20031201715

PATIENT
  Age: 62 Year
  Sex: Female
  Weight: 83.9154 kg

DRUGS (5)
  1. REMICADE [Suspect]
     Indication: CROHN'S DISEASE
     Dosage: INTRAVENOUS
     Route: 042
     Dates: start: 20030901
  2. ASACOL [Concomitant]
  3. PREDNISONE [Concomitant]
  4. UROCET (POTASSIUM CITRATE) [Concomitant]
  5. METRONIA ANTIBIOTIC (ANTIBIOTICS) [Concomitant]

REACTIONS (2)
  - DRUG INEFFECTIVE [None]
  - PRURITUS GENERALISED [None]
